FAERS Safety Report 10145694 (Version 1)
Quarter: 2014Q2

REPORT INFORMATION
  Report Type: Spontaneous
  Country: US (occurrence: US)
  Receive Date: 20140501
  Receipt Date: 20140501
  Transmission Date: 20141212
  Serious: No
  Sender: FDA-Public Use
  Company Number: US-ABBVIE-14P-163-1187423-00

PATIENT
  Sex: Male
  Weight: 110 kg

DRUGS (1)
  1. CREON [Suspect]
     Indication: PANCREATIC CARCINOMA
     Dosage: 1 CAPSULE WITH SNACKS AND 2 CAPSULES WITH MEALS
     Dates: start: 20131224

REACTIONS (1)
  - Blood glucose increased [Recovering/Resolving]
